FAERS Safety Report 15452482 (Version 2)
Quarter: 2018Q4

REPORT INFORMATION
  Report Type: Spontaneous
  Country: US (occurrence: US)
  Receive Date: 20181001
  Receipt Date: 20181115
  Transmission Date: 20190204
  Serious: Yes (Other)
  Sender: FDA-Public Use
  Company Number: US-SA-2018SA268915

PATIENT
  Age: 86 Year
  Sex: Female

DRUGS (2)
  1. TOUJEO [Suspect]
     Active Substance: INSULIN GLARGINE
     Indication: TYPE 2 DIABETES MELLITUS
     Dosage: 36 U, QD
  2. NOVOLOG [Suspect]
     Active Substance: INSULIN ASPART
     Dosage: UNK UNK, UNK

REACTIONS (2)
  - Fall [Unknown]
  - Macular degeneration [Unknown]
